FAERS Safety Report 5388131-3 (Version None)
Quarter: 2007Q3

REPORT INFORMATION
  Report Type: 
  Country: None (occurrence: None)
  Receive Date: 20070716
  Receipt Date: 20061207
  Transmission Date: 20080115
  Serious: No
  Sender: FDA-Public Use
  Company Number: A0630599A

PATIENT
  Age: 53 Year
  Sex: Male

DRUGS (2)
  1. NICORETTE [Suspect]
  2. NICODERM CQ [Suspect]
     Dates: start: 20061204, end: 20061205

REACTIONS (3)
  - ABDOMINAL PAIN UPPER [None]
  - PRURITUS GENERALISED [None]
  - SALIVARY HYPERSECRETION [None]
